FAERS Safety Report 9437102 (Version 3)
Quarter: 2013Q3

REPORT INFORMATION
  Report Type: Spontaneous
  Country: US (occurrence: US)
  Receive Date: 20130802
  Receipt Date: 20130903
  Transmission Date: 20140515
  Serious: Yes (Hospitalization, Disabling)
  Sender: FDA-Public Use
  Company Number: US-OTSUKA-US-2013-11440

PATIENT
  Age: 59 Year
  Sex: Female

DRUGS (9)
  1. ABILIFY MAINTENA [Suspect]
     Indication: BIPOLAR I DISORDER
     Dosage: 200 MG MILLIGRAM(S), UNK
     Route: 030
     Dates: start: 20130703
  2. ABILIFY MAINTENA [Suspect]
     Indication: PSYCHOTIC DISORDER
     Dosage: 400 MG MILLIGRAM(S), Q4WEEKS
     Route: 030
     Dates: end: 20130703
  3. ABILIFY [Suspect]
     Indication: BIPOLAR I DISORDER
     Dosage: 10 MG MILLIGRAM(S), QD
     Route: 048
     Dates: start: 20050103
  4. ABILIFY [Suspect]
     Indication: PSYCHOTIC DISORDER
  5. LAMICTAL [Concomitant]
     Indication: PRODUCT USED FOR UNKNOWN INDICATION
     Dosage: 100 MG MILLIGRAM(S), HS
  6. LAMICTAL [Concomitant]
     Dosage: 150 MG MILLIGRAM(S), HS
  7. AMBIEN [Concomitant]
     Indication: PRODUCT USED FOR UNKNOWN INDICATION
     Dosage: 10 MG MILLIGRAM(S), HS
  8. LISINOPRIL [Concomitant]
     Indication: PRODUCT USED FOR UNKNOWN INDICATION
     Dosage: 10 MG MILLIGRAM(S), QD
  9. HYDROCHLOORTHIAZIDE [Concomitant]
     Indication: PRODUCT USED FOR UNKNOWN INDICATION
     Dosage: 12.5 MG MILLIGRAM(S), QD

REACTIONS (4)
  - Renal failure [Unknown]
  - Musculoskeletal chest pain [Unknown]
  - Hyperglycaemia [Unknown]
  - Off label use [Unknown]
